FAERS Safety Report 12691488 (Version 2)
Quarter: 2016Q3

REPORT INFORMATION
  Report Type: Spontaneous
  Country: US (occurrence: US)
  Receive Date: 20160826
  Receipt Date: 20160907
  Transmission Date: 20161109
  Serious: Yes (Other)
  Sender: FDA-Public Use
  Company Number: US-TEVA-667585USA

PATIENT
  Sex: Female

DRUGS (1)
  1. ZECUITY [Suspect]
     Active Substance: SUMATRIPTAN SUCCINATE
     Route: 062

REACTIONS (8)
  - Application site paraesthesia [Unknown]
  - Application site erythema [Unknown]
  - Application site pain [Unknown]
  - Product leakage [Recovered/Resolved]
  - Drug administered to patient of inappropriate age [Unknown]
  - Application site irritation [Unknown]
  - Application site burn [Unknown]
  - Product adhesion issue [Recovered/Resolved]
